FAERS Safety Report 8066276-7 (Version None)
Quarter: 2012Q1

REPORT INFORMATION
  Report Type: 
  Country: None (occurrence: None)
  Receive Date: 20120117
  Receipt Date: 20120104
  Transmission Date: 20120608
  Serious: Yes (Life-Threatening)
  Sender: FDA-Public Use
  Company Number: 2012-00019

PATIENT
  Age: 59 Year
  Sex: Female
  Weight: 104.7 kg

DRUGS (21)
  1. ERYTHROMYCIN [Concomitant]
  2. LISINOPRIL [Suspect]
     Indication: PRODUCT USED FOR UNKNOWN INDICATION
     Dates: start: 20101101
  3. FLUCONAZOLE [Concomitant]
  4. FUSIDATE DIOLAMINE + FUSIDIC ACID + SODIUM FUSIDATE (FUCIDIN) (UNKNOWN [Concomitant]
  5. SALBUTAMOL + SALBUTAMOL BASE+ SALBUTAMOL SULPHATE+ SALBUTAMOL SULPHATE [Concomitant]
  6. FLUTICASONE (UNKNOWN) [Concomitant]
  7. OMEPRAZOLE [Concomitant]
  8. TIOTROPIUM BROMIDE (UNKNOWN) [Concomitant]
  9. THEOPHYLLINE + THEOPHYLLINE ANHYDROUS (UNIPHYLLIN) (UNKNOWN) [Concomitant]
  10. BENDROFLUAZIDE (BENDROFLUMETHIAZIDE) [Concomitant]
  11. FUROSEMIDE [Concomitant]
  12. ADRENALINE (EPIPEN) (UNKNOWN) [Concomitant]
  13. PREDNISOLONE [Suspect]
     Indication: PRODUCT USED FOR UNKNOWN INDICATION
     Dosage: 30 MG (30 MG)
     Dates: start: 20110816, end: 20110826
  14. AMLODIPINE [Concomitant]
  15. CODEINE PHOSPHATE + PARACETAMOL (CO-CODAMOL) (UNKNOWN) [Concomitant]
  16. CETIRIZINE HCL [Concomitant]
  17. OESTRADIOL VALERATE (CLIMAVAL) (UNKNOWN) [Concomitant]
  18. ESTRADIOL VALERATE (OESTRADIOL) (UNKNOWN) [Concomitant]
  19. FLUOXETINE (UNKNOWN) [Concomitant]
  20. NICOTINE [Concomitant]
  21. AMOXICILLIN [Suspect]
     Indication: PRODUCT USED FOR UNKNOWN INDICATION
     Dates: start: 20110816, end: 20110821

REACTIONS (4)
  - DRUG INTERACTION [None]
  - ANAPHYLACTIC REACTION [None]
  - OROPHARYNGEAL PAIN [None]
  - BRONCHOSPASM [None]
